FAERS Safety Report 15334263 (Version 2)
Quarter: 2018Q3

REPORT INFORMATION
  Report Type: Spontaneous
  Country: US (occurrence: US)
  Receive Date: 20180830
  Receipt Date: 20180904
  Transmission Date: 20181010
  Serious: No
  Sender: FDA-Public Use
  Company Number: US-PFIZER INC-2018346610

PATIENT
  Age: 48 Year
  Sex: Female

DRUGS (1)
  1. SOMAVERT [Suspect]
     Active Substance: PEGVISOMANT
     Dosage: 20 MG, DAILY
     Dates: start: 20161012

REACTIONS (5)
  - Blood glucose increased [Unknown]
  - Blood cholesterol increased [Unknown]
  - Blood alkaline phosphatase decreased [Unknown]
  - Insulin-like growth factor increased [Unknown]
  - Non-high-density lipoprotein cholesterol increased [Unknown]

NARRATIVE: CASE EVENT DATE: 20171226
